FAERS Safety Report 15861634 (Version 1)
Quarter: 2019Q1

REPORT INFORMATION
  Report Type: Spontaneous
  Country: NL (occurrence: NL)
  Receive Date: 20190124
  Receipt Date: 20190124
  Transmission Date: 20190417
  Serious: Yes (Other)
  Sender: FDA-Public Use
  Company Number: NL-ACCORD-097470

PATIENT
  Age: 41 Year
  Sex: Male
  Weight: 86 kg

DRUGS (3)
  1. FOLIUMZUUR [Concomitant]
     Active Substance: FOLIC ACID
     Indication: PSORIASIS
     Dosage: STRENGTH: 5 MG, ONCE A WEEK
     Route: 048
     Dates: start: 20161115
  2. ENSTILAR [Concomitant]
     Active Substance: BETAMETHASONE DIPROPIONATE\CALCIPOTRIENE HYDRATE
     Indication: PSORIASIS
     Dosage: STRENGTH: 0.05/ 0.5 ML
     Route: 003
     Dates: start: 20161115
  3. INJEXATE ACCORD [Suspect]
     Active Substance: METHOTREXATE SODIUM
     Indication: PSORIASIS
     Dosage: 10MG/ML, 0.20ML
     Route: 030
     Dates: start: 20181211

REACTIONS (2)
  - Injection site pain [Unknown]
  - Needle issue [Unknown]
